FAERS Safety Report 10088303 (Version 1)
Quarter: 2014Q2

REPORT INFORMATION
  Report Type: Spontaneous
  Country: US (occurrence: US)
  Receive Date: 20140421
  Receipt Date: 20140421
  Transmission Date: 20141212
  Serious: No
  Sender: FDA-Public Use
  Company Number: US-BIOGENIDEC-2014BI000012

PATIENT
  Age: 47 Year
  Sex: Male

DRUGS (2)
  1. TECFIDERA [Suspect]
     Indication: MULTIPLE SCLEROSIS
     Route: 048
     Dates: start: 20131211, end: 20131217
  2. TECFIDERA [Suspect]
     Indication: MULTIPLE SCLEROSIS
     Route: 048
     Dates: start: 20131218

REACTIONS (18)
  - Amnesia [Not Recovered/Not Resolved]
  - Dizziness [Unknown]
  - Feeling cold [Recovered/Resolved]
  - Skin discolouration [Recovered/Resolved]
  - Discomfort [Unknown]
  - Insomnia [Unknown]
  - Malnutrition [Unknown]
  - Mobility decreased [Unknown]
  - Weight decreased [Unknown]
  - Muscle atrophy [Not Recovered/Not Resolved]
  - Osteoporosis [Unknown]
  - Anxiety [Unknown]
  - Vomiting [Recovered/Resolved]
  - Nausea [Not Recovered/Not Resolved]
  - Diarrhoea [Not Recovered/Not Resolved]
  - Flushing [Not Recovered/Not Resolved]
  - Multiple sclerosis relapse [Not Recovered/Not Resolved]
  - Hot flush [Recovered/Resolved]
